FAERS Safety Report 4414775-9 (Version None)
Quarter: 2004Q3

REPORT INFORMATION
  Report Type: 
  Country: None (occurrence: None)
  Receive Date: 20040804
  Receipt Date: 20030915
  Transmission Date: 20050211
  Serious: No
  Sender: FDA-Public Use
  Company Number: US-BRISTOL-MYERS SQUIBB COMPANY-12382859

PATIENT
  Sex: Female

DRUGS (1)
  1. GLUCOVANCE [Suspect]

REACTIONS (3)
  - FEELING JITTERY [None]
  - NAUSEA [None]
  - TREMOR [None]
